FAERS Safety Report 7170041-2 (Version None)
Quarter: 2010Q4

REPORT INFORMATION
  Report Type: 
  Country: None (occurrence: None)
  Receive Date: 20101217
  Receipt Date: 20101209
  Transmission Date: 20110411
  Serious: Yes (Hospitalization)
  Sender: FDA-Public Use
  Company Number: US-SANOFI-AVENTIS-2010SA075401

PATIENT
  Age: 78 Year
  Sex: Male
  Weight: 77.1 kg

DRUGS (12)
  1. LASIX [Suspect]
     Route: 048
     Dates: start: 20101109
  2. ANTINEOPLASTIC AND IMMUNOSUPPRESSIVE AGENTS [Suspect]
     Indication: PROSTATE CANCER
     Route: 065
     Dates: start: 20100302, end: 20101126
  3. METFORMIN [Concomitant]
  4. SIMVASTATIN [Concomitant]
  5. GLIPIZIDE [Concomitant]
  6. NEURONTIN [Concomitant]
  7. VICODIN [Concomitant]
  8. FERROUS SULFATE [Concomitant]
  9. K-DUR [Concomitant]
  10. PRINIVIL [Concomitant]
  11. ATENOLOL [Concomitant]
  12. CHLORTHALIDONE [Concomitant]

REACTIONS (3)
  - DEHYDRATION [None]
  - HYPOTENSION [None]
  - PRESYNCOPE [None]
